FAERS Safety Report 24242330 (Version 1)
Quarter: 2024Q3

REPORT INFORMATION
  Report Type: Spontaneous
  Country: US (occurrence: US)
  Receive Date: 20240823
  Receipt Date: 20240823
  Transmission Date: 20241017
  Serious: Yes (Other)
  Sender: BAYER
  Company Number: US-BAYER-2024A117408

PATIENT
  Age: 27 Year
  Sex: Female

DRUGS (1)
  1. KOVALTRY [Suspect]
     Active Substance: ANTIHEMOPHILIC FACTOR, HUMAN RECOMBINANT
     Dosage: 4000 IU, EVERY 24 TO 48 HOURS

REACTIONS (2)
  - Haemarthrosis [None]
  - Contusion [None]

NARRATIVE: CASE EVENT DATE: 20240811
